FAERS Safety Report 10744496 (Version 1)
Quarter: 2015Q1

REPORT INFORMATION
  Report Type: Spontaneous
  Country: US (occurrence: None)
  Receive Date: 20150126
  Receipt Date: 20150126
  Transmission Date: 20150721
  Serious: Yes (Hospitalization)
  Sender: FDA-Public Use
  Company Number: None

PATIENT
  Age: 80 Year
  Sex: Male
  Weight: 85 kg

DRUGS (1)
  1. PHENYTOIN. [Suspect]
     Active Substance: PHENYTOIN
     Indication: SEIZURE
     Route: 048
     Dates: start: 20130615, end: 20140630

REACTIONS (12)
  - Dizziness [None]
  - Sedation [None]
  - Pyrexia [None]
  - Constipation [None]
  - Hepatic enzyme increased [None]
  - Blood creatinine increased [None]
  - Confusional state [None]
  - Blood urea increased [None]
  - Toxicity to various agents [None]
  - Thrombocytopenia [None]
  - Rash [None]
  - Drug reaction with eosinophilia and systemic symptoms [None]

NARRATIVE: CASE EVENT DATE: 20140630
